FAERS Safety Report 5467580-9 (Version None)
Quarter: 2007Q3

REPORT INFORMATION
  Report Type: 
  Country: None (occurrence: None)
  Receive Date: 20070921
  Receipt Date: 20070907
  Transmission Date: 20080115
  Serious: Yes (Hospitalization)
  Sender: FDA-Public Use
  Company Number: AZAUS200700231

PATIENT
  Age: 43 Year
  Sex: Male
  Weight: 110 kg

DRUGS (2)
  1. VIDAZA [Suspect]
     Indication: MYELODYSPLASTIC SYNDROME
     Dosage: (75 MG/M2, DAILY X 7 DAYS), SUBCUTANEOUS
     Route: 058
     Dates: start: 20070523, end: 20070529
  2. VORINOSTAT [Suspect]
     Indication: MYELODYSPLASTIC SYNDROME
     Dosage: 600 MG (200 MG, THREE TIMES DAILY ON DAYS 3 - 16), ORAL
     Route: 048
     Dates: start: 20070525, end: 20070606

REACTIONS (7)
  - ABDOMINAL PAIN [None]
  - ACUTE FEBRILE NEUTROPHILIC DERMATOSIS [None]
  - POST PROCEDURAL HAEMATOMA [None]
  - RENAL FAILURE [None]
  - RESPIRATORY FAILURE [None]
  - SEPSIS [None]
  - VOCAL CORD DISORDER [None]
